FAERS Safety Report 9749197 (Version 1)
Quarter: 2013Q4

REPORT INFORMATION
  Report Type: Spontaneous
  Country: US (occurrence: US)
  Receive Date: 20131212
  Receipt Date: 20131212
  Transmission Date: 20140711
  Serious: No
  Sender: FDA-Public Use
  Company Number: US-INCYTE CORPORATION-2013IN002420

PATIENT
  Sex: Female

DRUGS (1)
  1. JAKAFI [Suspect]
     Dosage: 1 TAB T,TH, SAT, SUN; 2 TABS M,W F
     Route: 048
     Dates: start: 201210

REACTIONS (1)
  - Drug dose omission [Recovered/Resolved]
